FAERS Safety Report 5979069-9 (Version None)
Quarter: 2008Q4

REPORT INFORMATION
  Report Type: 
  Country: None (occurrence: None)
  Receive Date: 20081204
  Receipt Date: 20080520
  Transmission Date: 20090506
  Serious: No
  Sender: FDA-Public Use
  Company Number: US-ABBOTT-08P-163-0455732-00

PATIENT
  Age: 35 Year
  Sex: Male

DRUGS (2)
  1. TRICOR [Suspect]
     Indication: HIGH DENSITY LIPOPROTEIN DECREASED
  2. NIASPAN [Suspect]

REACTIONS (3)
  - ABNORMAL DREAMS [None]
  - DRUG EFFECT DECREASED [None]
  - INSOMNIA [None]
